FAERS Safety Report 15794213 (Version 1)
Quarter: 2019Q1

REPORT INFORMATION
  Report Type: Spontaneous
  Country: CN (occurrence: CN)
  Receive Date: 20190107
  Receipt Date: 20190107
  Transmission Date: 20190417
  Serious: Yes (Other)
  Sender: FDA-Public Use
  Company Number: CN-PFIZER INC-2019001082

PATIENT
  Age: 64 Year
  Sex: Female

DRUGS (3)
  1. PHARMORUBICIN [Suspect]
     Active Substance: EPIRUBICIN
     Indication: TARGETED CANCER THERAPY
     Dosage: 120 MG, 1X/DAY
     Route: 041
     Dates: start: 20181008, end: 20181008
  2. CYCLOPHOSPHAMIDE. [Concomitant]
     Active Substance: CYCLOPHOSPHAMIDE
     Indication: TARGETED CANCER THERAPY
     Dosage: 0.7 G, UNK
  3. DOCETAXEL. [Concomitant]
     Active Substance: DOCETAXEL
     Indication: TARGETED CANCER THERAPY
     Dosage: 120 MG, 1X/DAY
     Route: 041
     Dates: start: 20181008, end: 20181008

REACTIONS (1)
  - Liver injury [Recovered/Resolved]

NARRATIVE: CASE EVENT DATE: 20181008
